FAERS Safety Report 6552800-X (Version None)
Quarter: 2010Q1

REPORT INFORMATION
  Report Type: 
  Country: None (occurrence: None)
  Receive Date: 20100121
  Receipt Date: 20100106
  Transmission Date: 20100710
  Serious: Yes (Death)
  Sender: FDA-Public Use
  Company Number: KV201000019

PATIENT
  Age: 74 Year
  Sex: Female
  Weight: 52.6 kg

DRUGS (10)
  1. PROPAFENONE HYDROCHLORIDE [Suspect]
     Indication: DRUG USE FOR UNKNOWN INDICATION
     Dosage: 75 MG (1/2 TABLET), QD, ORAL, 112 MG, BID, ORAL
     Route: 048
  2. ASPIRIN [Concomitant]
  3. ATIVAN (LORAZEPAM0 [Concomitant]
  4. ALTACE [Concomitant]
  5. FOLBEE (CYANOCOBALAMIN, FOLIC ACID, PYRIDOXINE) [Concomitant]
  6. LABETALOL HCL [Concomitant]
  7. LIPITOR [Concomitant]
  8. LOPRESSOR [Concomitant]
  9. PLAQUENIL [Concomitant]
  10. OXYCONTIN [Concomitant]

REACTIONS (21)
  - ACUTE MYOCARDIAL INFARCTION [None]
  - BACK PAIN [None]
  - BRADYCARDIA [None]
  - BUNDLE BRANCH BLOCK LEFT [None]
  - COLD SWEAT [None]
  - CONFUSIONAL STATE [None]
  - DEPRESSED LEVEL OF CONSCIOUSNESS [None]
  - DIARRHOEA [None]
  - DYSPNOEA [None]
  - HERPES ZOSTER [None]
  - HYPERHIDROSIS [None]
  - HYPOTENSION [None]
  - MYOCARDIAL ISCHAEMIA [None]
  - PULMONARY OEDEMA [None]
  - PULSE ABSENT [None]
  - RASH [None]
  - RESPIRATORY DISTRESS [None]
  - SINUS TACHYCARDIA [None]
  - TACHYCARDIA [None]
  - UNRESPONSIVE TO STIMULI [None]
  - WHEEZING [None]
